FAERS Safety Report 5653007-0 (Version None)
Quarter: 2008Q1

REPORT INFORMATION
  Report Type: 
  Country: None (occurrence: None)
  Receive Date: 20080131
  Receipt Date: 20071012
  Transmission Date: 20080703
  Serious: No
  Sender: FDA-Public Use
  Company Number: US200710003647

PATIENT
  Age: 62 Year
  Sex: Female

DRUGS (3)
  1. BYETTA [Suspect]
     Indication: TYPE 2 DIABETES MELLITUS
     Dosage: 5 UG, 2/D,
     Dates: start: 20071011
  2. METFORMIN HCL [Concomitant]
  3. VICKS VAPORUB (CAMPHOR, EUCALYPTUS GLOBULUS OIL, JUNIPERUS VIRGINIANA [Concomitant]

REACTIONS (5)
  - DRUG INEFFECTIVE [None]
  - LIP SWELLING [None]
  - MALAISE [None]
  - RASH PRURITIC [None]
  - SINUSITIS [None]
